FAERS Safety Report 5618627-8 (Version None)
Quarter: 2008Q1

REPORT INFORMATION
  Report Type: 
  Country: None (occurrence: None)
  Receive Date: 20080207
  Receipt Date: 20080128
  Transmission Date: 20080703
  Serious: Yes (Hospitalization)
  Sender: FDA-Public Use
  Company Number: ES-ABBOTT-08P-144-0435894-00

PATIENT
  Age: 73 Year
  Sex: Female

DRUGS (5)
  1. DEPAKINE CHRONOSPHERE GRANULE [Suspect]
     Indication: DRUG USE FOR UNKNOWN INDICATION
     Route: 048
     Dates: start: 20070101
  2. DEPAKINE CHRONOSPHERE GRANULE [Suspect]
  3. DEPAKINE CHRONOSPHERE GRANULE [Suspect]
     Dosage: DOSE REDUCED
  4. OMEPRAZOLE [Suspect]
     Indication: DRUG USE FOR UNKNOWN INDICATION
     Dates: start: 20070101
  5. OMEPRAZOLE [Suspect]
     Dosage: DOSE REDUCED

REACTIONS (4)
  - BLOOD LACTATE DEHYDROGENASE INCREASED [None]
  - CHOLELITHIASIS [None]
  - HEPATOCELLULAR INJURY [None]
  - HEPATOTOXICITY [None]
